FAERS Safety Report 11677849 (Version 1)
Quarter: 2015Q4

REPORT INFORMATION
  Report Type: Spontaneous
  Country: US (occurrence: US)
  Receive Date: 20151027
  Receipt Date: 20151027
  Transmission Date: 20160304
  Serious: No
  Sender: FDA-Public Use
  Company Number: US-ELI_LILLY_AND_COMPANY-US201010006788

PATIENT
  Age: 83 Year
  Sex: Female

DRUGS (1)
  1. FORTEO [Suspect]
     Active Substance: TERIPARATIDE
     Indication: OSTEOPOROSIS
     Dosage: 20 UG, DAILY (1/D)
     Dates: start: 2009, end: 201007

REACTIONS (4)
  - Gait disturbance [Recovering/Resolving]
  - Ligament rupture [Recovering/Resolving]
  - Abasia [Recovering/Resolving]
  - Arthralgia [Recovering/Resolving]

NARRATIVE: CASE EVENT DATE: 201007
